FAERS Safety Report 9530121 (Version 1)
Quarter: 2013Q3

REPORT INFORMATION
  Report Type: Spontaneous
  Country: US (occurrence: US)
  Receive Date: 20130917
  Receipt Date: 20130917
  Transmission Date: 20140515
  Serious: Yes (Other)
  Sender: FDA-Public Use
  Company Number: US-GILEAD-2013-0083367

PATIENT
  Sex: Male

DRUGS (3)
  1. RANEXA [Suspect]
     Indication: PRODUCT USED FOR UNKNOWN INDICATION
     Dosage: 500 MG, BID
     Route: 048
  2. RANEXA [Suspect]
     Dosage: 500 MG BID
     Route: 048
     Dates: start: 201308
  3. RANEXA [Suspect]
     Dosage: 1000 MG BID
     Route: 048
     Dates: start: 201308

REACTIONS (3)
  - Deafness unilateral [Not Recovered/Not Resolved]
  - Urine odour abnormal [Not Recovered/Not Resolved]
  - Chromaturia [Not Recovered/Not Resolved]
